FAERS Safety Report 23267501 (Version 3)
Quarter: 2023Q4

REPORT INFORMATION
  Report Type: Spontaneous
  Country: US (occurrence: US)
  Receive Date: 20231206
  Receipt Date: 20231228
  Transmission Date: 20240109
  Serious: Yes (Other)
  Sender: FDA-Public Use
  Company Number: US-ALCON LABORATORIES-ALC2023US005383

PATIENT
  Age: 44 Year
  Sex: Female

DRUGS (1)
  1. DEXTRAN\HYPROMELLOSES [Suspect]
     Active Substance: DEXTRAN\HYPROMELLOSES
     Indication: Product used for unknown indication
     Dosage: 2 DROPS AT NIGHT
     Route: 047
     Dates: start: 202310

REACTIONS (6)
  - Product contamination microbial [Unknown]
  - Exposure to fungus [Recovered/Resolved]
  - Periorbital swelling [Recovered/Resolved]
  - Eye irritation [Recovered/Resolved]
  - Ocular hyperaemia [Recovered/Resolved]
  - Eye pruritus [Recovered/Resolved]

NARRATIVE: CASE EVENT DATE: 20231123
